FAERS Safety Report 9440541 (Version 1)
Quarter: 2013Q3

REPORT INFORMATION
  Report Type: Spontaneous
  Country: US (occurrence: US)
  Receive Date: 20130805
  Receipt Date: 20130805
  Transmission Date: 20140515
  Serious: Yes (Other)
  Sender: FDA-Public Use
  Company Number: US-BAYER-2013-091106

PATIENT
  Age: 73 Year
  Sex: Male

DRUGS (1)
  1. CIPRO [Suspect]
     Indication: INFECTION PROPHYLAXIS
     Dosage: 500 MG, BID
     Route: 048

REACTIONS (2)
  - Asthenia [None]
  - Abasia [None]
